FAERS Safety Report 13825252 (Version 1)
Quarter: 2017Q3

REPORT INFORMATION
  Report Type: Spontaneous
  Country: US (occurrence: US)
  Receive Date: 20170801
  Receipt Date: 20170801
  Transmission Date: 20171127
  Serious: Yes (Death)
  Sender: FDA-Public Use
  Company Number: None

PATIENT
  Age: 68 Year
  Sex: Male

DRUGS (16)
  1. POLYETH GLYC [Concomitant]
     Active Substance: POLYETHYLENE GLYCOLS
  2. SENNA LAXATIVE [Concomitant]
     Active Substance: SENNOSIDES
  3. LACTULOSE SOL [Concomitant]
  4. SUPPOSITORY MIS [Concomitant]
  5. STOOL SOFTNR [Concomitant]
  6. NUPLAZID [Suspect]
     Active Substance: PIMAVANSERIN TARTRATE
     Indication: HALLUCINATION
     Route: 048
     Dates: start: 20170120, end: 20170724
  7. SIMVASTATIN. [Concomitant]
     Active Substance: SIMVASTATIN
  8. CLYDOPYPRIL [Concomitant]
  9. NUPLAZID [Suspect]
     Active Substance: PIMAVANSERIN TARTRATE
     Indication: PARKINSON^S DISEASE
     Route: 048
     Dates: start: 20170120, end: 20170724
  10. NORTHERA [Concomitant]
     Active Substance: DROXIDOPA
  11. CARB/LEVO [Concomitant]
     Active Substance: CARBIDOPA\LEVODOPA
  12. CEPHALEXIN. [Concomitant]
     Active Substance: CEPHALEXIN
  13. ATORVASTATIN [Concomitant]
     Active Substance: ATORVASTATIN
  14. SEROQUEL [Concomitant]
     Active Substance: QUETIAPINE FUMARATE
  15. QUETIAPINE. [Concomitant]
     Active Substance: QUETIAPINE
  16. TRAZODONE [Concomitant]
     Active Substance: TRAZODONE HYDROCHLORIDE

REACTIONS (1)
  - Death [None]

NARRATIVE: CASE EVENT DATE: 20170724
